FAERS Safety Report 18498691 (Version 1)
Quarter: 2020Q4

REPORT INFORMATION
  Report Type: Spontaneous
  Country: US (occurrence: US)
  Receive Date: 20201113
  Receipt Date: 20201113
  Transmission Date: 20210114
  Serious: No
  Sender: FDA-Public Use
  Company Number: US-AMGEN-USASP2020182968

PATIENT
  Age: 68 Year
  Sex: Male

DRUGS (4)
  1. SOLU-MEDROL [Concomitant]
     Active Substance: METHYLPREDNISOLONE SODIUM SUCCINATE
     Dosage: UNK
  2. ENBREL [Suspect]
     Active Substance: ETANERCEPT
     Indication: RHEUMATOID ARTHRITIS
     Dosage: UNK
     Route: 065
  3. DIPHENHYDRAMINE. [Concomitant]
     Active Substance: DIPHENHYDRAMINE
     Dosage: UNK
  4. RITUXAN [Concomitant]
     Active Substance: RITUXIMAB
     Dosage: UNK

REACTIONS (3)
  - Chalazion [Recovered/Resolved]
  - Synovial cyst [Recovered/Resolved]
  - Synovial rupture [Recovered/Resolved]

NARRATIVE: CASE EVENT DATE: 20201103
